FAERS Safety Report 8999253 (Version 1)
Quarter: 2013Q1

REPORT INFORMATION
  Report Type: Spontaneous
  Country: US (occurrence: US)
  Receive Date: 20130103
  Receipt Date: 20130103
  Transmission Date: 20140127
  Serious: No
  Sender: FDA-Public Use
  Company Number: US-PFIZER INC-2012331279

PATIENT
  Age: 55 Year
  Sex: Female
  Weight: 59.86 kg

DRUGS (3)
  1. GEODON [Suspect]
     Indication: BIPOLAR DISORDER
     Dosage: UNK, DAILY
     Dates: start: 2011, end: 201202
  2. ATENOLOL [Suspect]
     Indication: TREMOR
     Dosage: 20 MG, DAILY
  3. ATENOLOL [Suspect]
     Dosage: 20 MG, ALTERNATE DAY

REACTIONS (4)
  - Drug ineffective [Unknown]
  - Somnolence [Recovered/Resolved]
  - Personality change [Recovered/Resolved]
  - Dizziness [Unknown]
